FAERS Safety Report 6979735-2 (Version None)
Quarter: 2010Q3

REPORT INFORMATION
  Report Type: 
  Country: None (occurrence: None)
  Receive Date: 20100914
  Receipt Date: 20100906
  Transmission Date: 20110219
  Serious: Yes (Hospitalization)
  Sender: FDA-Public Use
  Company Number: PHHO2010FR10295

PATIENT
  Sex: Male
  Weight: 71 kg

DRUGS (17)
  1. CERTICAN [Suspect]
     Indication: RENAL TRANSPLANT
     Dosage: 1.25 MG, BID
     Route: 048
     Dates: start: 20100614
  2. CERTICAN [Suspect]
     Dosage: 0.5 MG, BID
     Route: 048
     Dates: start: 20100708
  3. NEORAL [Suspect]
     Indication: RENAL TRANSPLANT
  4. CELLCEPT [Suspect]
     Indication: RENAL TRANSPLANT
     Dosage: 1.5 G, BID
     Route: 048
     Dates: start: 20100505
  5. CELLCEPT [Suspect]
     Dosage: 0.5 G, BID
     Route: 048
     Dates: start: 20100707
  6. SOLUPRED [Concomitant]
     Indication: RENAL TRANSPLANT
     Dosage: 10 MG / DAY
     Route: 048
     Dates: start: 20100505
  7. MOPRAL [Concomitant]
  8. PHOSPHORUS [Concomitant]
     Indication: HYPOCALCAEMIA
  9. TARDYFERON [Concomitant]
     Indication: ANAEMIA
  10. NOVONORM [Concomitant]
  11. ARANESP [Concomitant]
     Indication: ANAEMIA
  12. IPERTEN [Concomitant]
     Indication: HYPERTENSION
  13. NEBIVOLOL HCL [Concomitant]
     Indication: HYPERTENSION
  14. KALEORID [Concomitant]
     Indication: HYPOKALAEMIA
  15. FLAGYL [Concomitant]
     Indication: HYPERTENSION
  16. MANIDIPINE [Concomitant]
     Indication: HYPERTENSION
  17. MAG 2 [Concomitant]

REACTIONS (4)
  - ACCIDENTAL OVERDOSE [None]
  - C-REACTIVE PROTEIN INCREASED [None]
  - DIARRHOEA [None]
  - PYREXIA [None]
